FAERS Safety Report 11208229 (Version 1)
Quarter: 2015Q2

REPORT INFORMATION
  Report Type: Report from Study
  Country: BR (occurrence: BR)
  Receive Date: 20150622
  Receipt Date: 20150622
  Transmission Date: 20150821
  Serious: Yes (Hospitalization)
  Sender: FDA-Public Use
  Company Number: BR-PFIZER INC-HQWYE749229JUN04

PATIENT
  Age: 54 Year
  Sex: Female
  Weight: 53.9 kg

DRUGS (1)
  1. BAZEDOXIFENE ACETATE/EQUILIN SULFATE SODIUM/ESTRONE SODIUM SULFATE [Suspect]
     Active Substance: BAZEDOXIFENE ACETATE\ESTROGENS, CONJUGATED
     Indication: MENOPAUSE
     Dosage: 1 DF, 1X/DAY
     Route: 048
     Dates: start: 20030820, end: 20040622

REACTIONS (6)
  - Abdominal pain upper [None]
  - Hyperhidrosis [None]
  - Coronary artery restenosis [None]
  - Fatigue [None]
  - Myocardial ischaemia [Recovered/Resolved]
  - Bundle branch block right [None]

NARRATIVE: CASE EVENT DATE: 20040623
